FAERS Safety Report 10207379 (Version 1)
Quarter: 2014Q2

REPORT INFORMATION
  Report Type: Spontaneous
  Country: US (occurrence: US)
  Receive Date: 20140530
  Receipt Date: 20140530
  Transmission Date: 20141212
  Serious: No
  Sender: FDA-Public Use
  Company Number: US-GLAXOSMITHKLINE-A1038763A

PATIENT
  Age: 42 Year
  Sex: Female

DRUGS (3)
  1. VENTOLIN [Suspect]
     Indication: ASTHMA
     Dosage: 1PUFF SINGLE DOSE
     Route: 055
     Dates: start: 20130821, end: 20130821
  2. PREDNISONE [Concomitant]
  3. PROMETHAZINE [Concomitant]

REACTIONS (4)
  - Paraesthesia [Recovered/Resolved]
  - Paraesthesia [Unknown]
  - Eye swelling [Unknown]
  - Erythema [Unknown]
